FAERS Safety Report 18943869 (Version 1)
Quarter: 2021Q1

REPORT INFORMATION
  Report Type: Spontaneous
  Country: US (occurrence: US)
  Receive Date: 20210225
  Receipt Date: 20210225
  Transmission Date: 20210420
  Serious: Yes (Disabling)
  Sender: FDA-Public Use
  Company Number: None

PATIENT
  Sex: Male

DRUGS (1)
  1. FINASTERIDE. [Suspect]
     Active Substance: FINASTERIDE
     Indication: ALOPECIA
     Dates: start: 20190815, end: 20190901

REACTIONS (5)
  - Testicular pain [None]
  - Mental disorder [None]
  - Erectile dysfunction [None]
  - Negative thoughts [None]
  - Loss of libido [None]

NARRATIVE: CASE EVENT DATE: 20190901
